FAERS Safety Report 15331399 (Version 1)
Quarter: 2018Q3

REPORT INFORMATION
  Report Type: Report from Study
  Country: DE (occurrence: DE)
  Receive Date: 20180829
  Receipt Date: 20180829
  Transmission Date: 20181010
  Serious: Yes (Hospitalization)
  Sender: FDA-Public Use
  Company Number: DE-JNJFOC-20180831481

PATIENT
  Age: 33 Year
  Sex: Female
  Weight: 41 kg

DRUGS (6)
  1. FENTANYL. [Concomitant]
     Active Substance: FENTANYL
     Indication: CROHN^S DISEASE
     Route: 065
     Dates: start: 20180509
  2. STELARA [Suspect]
     Active Substance: USTEKINUMAB
     Indication: CROHN^S DISEASE
     Route: 058
     Dates: start: 20180314
  3. PREDNISOLONE. [Concomitant]
     Active Substance: PREDNISOLONE
     Indication: CROHN^S DISEASE
     Route: 065
     Dates: start: 20180314
  4. UNACID [Concomitant]
     Indication: CROHN^S DISEASE
     Route: 065
     Dates: start: 20180509
  5. GENTAMICIN. [Concomitant]
     Active Substance: GENTAMICIN
     Indication: CROHN^S DISEASE
     Route: 065
     Dates: start: 20180509
  6. PANTOZOL [Concomitant]
     Active Substance: PANTOPRAZOLE SODIUM
     Indication: CROHN^S DISEASE
     Route: 065
     Dates: start: 20180509

REACTIONS (1)
  - Colectomy [Recovered/Resolved]

NARRATIVE: CASE EVENT DATE: 20180424
